FAERS Safety Report 10189708 (Version 1)
Quarter: 2014Q2

REPORT INFORMATION
  Report Type: Spontaneous
  Country: US (occurrence: US)
  Receive Date: 20140522
  Receipt Date: 20140522
  Transmission Date: 20141212
  Serious: Yes (Hospitalization)
  Sender: FDA-Public Use
  Company Number: US-SA-2014SA036923

PATIENT
  Age: 66 Year
  Sex: Female

DRUGS (7)
  1. SOLOSTAR [Suspect]
     Indication: TYPE 2 DIABETES MELLITUS
     Dosage: TREATMENT START DATE: ONE TO ONE AND HALF YEARS AGO
  2. SOLOSTAR [Suspect]
     Indication: TYPE 2 DIABETES MELLITUS
     Dosage: TREATMENT START DATE: ONE TO ONE AND HALF YEARS AGO
  3. LANTUS SOLOSTAR [Suspect]
     Indication: TYPE 2 DIABETES MELLITUS
     Dosage: TREATMENT START DATE: ONE TO ONE AND HALF YEARS AGO DOSE:27 UNIT(S)
     Route: 065
  4. LANTUS SOLOSTAR [Suspect]
     Indication: TYPE 2 DIABETES MELLITUS
     Dosage: TREATMENT START DATE: ONE TO ONE AND HALF YEARS AGO DOSE:27 UNIT(S)
     Route: 065
  5. NOVOLOG [Concomitant]
     Indication: DIABETES MELLITUS
     Dosage: DOSE:12 UNIT(S)
  6. AMLODIPINE [Concomitant]
  7. LOVASTIN [Concomitant]

REACTIONS (1)
  - Blood glucose increased [Recovered/Resolved]
